FAERS Safety Report 5130593-0 (Version None)
Quarter: 2006Q4

REPORT INFORMATION
  Report Type: 
  Country: None (occurrence: None)
  Receive Date: 20061017
  Receipt Date: 20061017
  Transmission Date: 20070319
  Serious: Yes (Other)
  Sender: FDA-Public Use
  Company Number: None

PATIENT
  Age: 52 Year
  Sex: Female

DRUGS (1)
  1. HYDROMORPHONE HCL [Suspect]
     Dosage: 2 MG IV EVERY 4 HOURS
     Route: 042
     Dates: start: 20061004

REACTIONS (1)
  - BLOOD PRESSURE INCREASED [None]
